FAERS Safety Report 9631993 (Version 2)
Quarter: 2013Q4

REPORT INFORMATION
  Report Type: Spontaneous
  Country: US (occurrence: US)
  Receive Date: 20131018
  Receipt Date: 20131018
  Transmission Date: 20140711
  Serious: No
  Sender: FDA-Public Use
  Company Number: US-ASTELLAS-2013US008115

PATIENT
  Age: 45 Year
  Sex: Male

DRUGS (1)
  1. MYCAMINE [Suspect]
     Indication: FUNGAL INFECTION
     Dosage: 150 MG, UID/QD
     Route: 042
     Dates: start: 20130608, end: 20130610

REACTIONS (1)
  - Off label use [Unknown]
